FAERS Safety Report 4475148-6 (Version None)
Quarter: 2004Q3

REPORT INFORMATION
  Report Type: 
  Country: None (occurrence: None)
  Receive Date: 20040923
  Receipt Date: 20040817
  Transmission Date: 20050211
  Serious: No
  Sender: FDA-Public Use
  Company Number: USA040670959

PATIENT
  Age: 78 Year
  Sex: Female

DRUGS (6)
  1. FORTEO [Suspect]
     Indication: OSTEOPOROSIS
     Dosage: 20 UG DAY
     Dates: start: 20040201
  2. METHADONE HCL [Concomitant]
  3. TYLENOL W/ CODEINE NO. 3 [Concomitant]
  4. LEXAPRO [Concomitant]
  5. XANAX (ALPRAZOLAM DUM) [Concomitant]
  6. CALCIUM [Concomitant]

REACTIONS (4)
  - BONE PAIN [None]
  - MUSCLE RIGIDITY [None]
  - MUSCULOSKELETAL STIFFNESS [None]
  - PAIN [None]
